FAERS Safety Report 6289490-X (Version None)
Quarter: 2009Q3

REPORT INFORMATION
  Report Type: 
  Country: None (occurrence: None)
  Receive Date: 20090730
  Receipt Date: 20090724
  Transmission Date: 20100115
  Serious: Yes (Other)
  Sender: FDA-Public Use
  Company Number: AT-TEVA-203848USA

PATIENT
  Age: 79 Year
  Sex: Female
  Weight: 55 kg

DRUGS (3)
  1. BISELECT [Suspect]
  2. PANTOPRAZOLE SODIUM [Suspect]
     Dosage: 40MG, 1 IN 2 DAYS
     Route: 048
  3. THIAMAZOLE [Suspect]
     Route: 048

REACTIONS (2)
  - GAIT DISTURBANCE [None]
  - POLYNEUROPATHY [None]
